FAERS Safety Report 11408517 (Version 1)
Quarter: 2015Q3

REPORT INFORMATION
  Report Type: Report from Study
  Country: US (occurrence: US)
  Receive Date: 20150821
  Receipt Date: 20150821
  Transmission Date: 20151125
  Serious: Yes (Death, Hospitalization)
  Sender: FDA-Public Use
  Company Number: US-ABBVIE-15K-163-1447085-00

PATIENT
  Age: 46 Year
  Sex: Male
  Weight: 170.25 kg

DRUGS (3)
  1. HUMIRA [Suspect]
     Active Substance: ADALIMUMAB
     Indication: COLITIS ULCERATIVE
     Route: 058
     Dates: start: 2014, end: 201504
  2. REMICADE [Suspect]
     Active Substance: INFLIXIMAB
     Indication: COLITIS ULCERATIVE
     Dosage: DURATION: THREE TREATMENTS
     Route: 065
     Dates: start: 201504
  3. DELZICOL [Concomitant]
     Active Substance: MESALAMINE
     Indication: COLITIS ULCERATIVE

REACTIONS (16)
  - Abdominal pain [Recovering/Resolving]
  - Feeding disorder [Recovering/Resolving]
  - Chest pain [Not Recovered/Not Resolved]
  - Anxiety [Not Recovered/Not Resolved]
  - Cardiac arrest [Fatal]
  - Colitis ulcerative [Recovering/Resolving]
  - Blood potassium decreased [Recovering/Resolving]
  - Pulmonary embolism [Fatal]
  - Malnutrition [Recovering/Resolving]
  - Dyspepsia [Recovering/Resolving]
  - Drug ineffective [Unknown]
  - Haematochezia [Recovering/Resolving]
  - Fluid intake reduced [Recovering/Resolving]
  - Dyspnoea [Not Recovered/Not Resolved]
  - Asthenia [Recovering/Resolving]
  - Dyspepsia [Recovering/Resolving]

NARRATIVE: CASE EVENT DATE: 201501
